FAERS Safety Report 19132916 (Version 1)
Quarter: 2021Q2

REPORT INFORMATION
  Report Type: Spontaneous
  Country: US (occurrence: US)
  Receive Date: 20210413
  Receipt Date: 20210413
  Transmission Date: 20210717
  Serious: Yes (Death)
  Sender: FDA-Public Use
  Company Number: None

PATIENT
  Age: 59 Year
  Sex: Female
  Weight: 59.3 kg

DRUGS (5)
  1. TOCILIZUMAB. [Concomitant]
     Active Substance: TOCILIZUMAB
     Dates: start: 20210404, end: 20210406
  2. ANAKINRA [Concomitant]
     Active Substance: ANAKINRA
     Dates: start: 20210405, end: 20210405
  3. YESCARTA [Suspect]
     Active Substance: AXICABTAGENE CILOLEUCEL
     Indication: DIFFUSE LARGE B-CELL LYMPHOMA
     Dosage: ?          OTHER FREQUENCY:ONE TIME;?
     Route: 042
  4. ACETAMINOPHEN. [Concomitant]
     Active Substance: ACETAMINOPHEN
     Dates: start: 20210331, end: 20210406
  5. DEXAMETHASONE 20 MG [Concomitant]
     Dates: start: 20210404, end: 20210407

REACTIONS (9)
  - Hypotension [None]
  - Depressed level of consciousness [None]
  - Shock [None]
  - Hypoxia [None]
  - Respiratory failure [None]
  - Febrile neutropenia [None]
  - Cardiac failure [None]
  - Chest discomfort [None]
  - Cognitive disorder [None]

NARRATIVE: CASE EVENT DATE: 20210407
